FAERS Safety Report 8367891-3 (Version None)
Quarter: 2012Q2

REPORT INFORMATION
  Report Type: 
  Country: None (occurrence: None)
  Receive Date: 20120516
  Receipt Date: 20120504
  Transmission Date: 20120825
  Serious: Yes (Other)
  Sender: FDA-Public Use
  Company Number: 1265970

PATIENT
  Age: 15 Year
  Sex: Female
  Weight: 45.91 kg

DRUGS (2)
  1. VERSED [Concomitant]
  2. MEPERIDINE HYDROCHLORIDE [Suspect]
     Indication: SEDATION
     Dosage: 100 MG, 1X, INTRAVENOUS (NOT OTHERWISE SPECIFIED)
     Route: 042
     Dates: start: 20120405, end: 20120405

REACTIONS (1)
  - ERYTHEMA [None]
